FAERS Safety Report 8230584-7 (Version None)
Quarter: 2012Q1

REPORT INFORMATION
  Report Type: 
  Country: None (occurrence: None)
  Receive Date: 20120323
  Receipt Date: 20120314
  Transmission Date: 20120608
  Serious: Yes (Other)
  Sender: FDA-Public Use
  Company Number: US-JNJFOC-20120308376

PATIENT
  Sex: Female
  Weight: 54.43 kg

DRUGS (2)
  1. TOPIRAMATE [Suspect]
     Indication: MIGRAINE PROPHYLAXIS
     Route: 048
     Dates: start: 20120201, end: 20120301
  2. TOPIRAMATE [Suspect]
     Route: 048
     Dates: start: 20120301, end: 20120312

REACTIONS (3)
  - HEADACHE [None]
  - SOMNOLENCE [None]
  - ABNORMAL BEHAVIOUR [None]
